FAERS Safety Report 19508171 (Version 15)
Quarter: 2022Q4

REPORT INFORMATION
  Report Type: Spontaneous
  Country: JP (occurrence: JP)
  Receive Date: 20210708
  Receipt Date: 20221021
  Transmission Date: 20230113
  Serious: Yes (Hospitalization, Other)
  Sender: FDA-Public Use
  Company Number: JP-BRISTOL-MYERS SQUIBB COMPANY-BMS-2021-027873

PATIENT
  Age: 9 Decade
  Sex: Female

DRUGS (8)
  1. YERVOY [Suspect]
     Active Substance: IPILIMUMAB
     Indication: Malignant neoplasm of thymus
     Dosage: 1 MG/KG, Q6W
     Route: 041
     Dates: start: 20210303, end: 20210303
  2. YERVOY [Suspect]
     Active Substance: IPILIMUMAB
     Indication: Lung neoplasm malignant
  3. OPDIVO [Suspect]
     Active Substance: NIVOLUMAB
     Indication: Lung neoplasm malignant
     Route: 041
     Dates: start: 20210303, end: 20210303
  4. OPDIVO [Suspect]
     Active Substance: NIVOLUMAB
     Indication: Malignant neoplasm of thymus
  5. PREDONINE [Suspect]
     Active Substance: PREDNISOLONE
     Indication: Pyrexia
     Route: 065
     Dates: start: 20210312, end: 20210322
  6. PREDONINE [Suspect]
     Active Substance: PREDNISOLONE
     Route: 065
     Dates: start: 20210323
  7. PREDONINE [Suspect]
     Active Substance: PREDNISOLONE
     Dosage: GRADUALLY DECREASE 5M?/EVERYWEEK
     Route: 065
  8. PREDONINE [Suspect]
     Active Substance: PREDNISOLONE
     Route: 065

REACTIONS (5)
  - Tumour pseudoprogression [Recovered/Resolved]
  - Infusion related reaction [Recovered/Resolved]
  - Erythema [Recovering/Resolving]
  - Arthralgia [Recovering/Resolving]
  - Gastric ulcer [Unknown]

NARRATIVE: CASE EVENT DATE: 20210303
